FAERS Safety Report 5585749-X (Version None)
Quarter: 2008Q1

REPORT INFORMATION
  Report Type: 
  Country: None (occurrence: None)
  Receive Date: 20080104
  Receipt Date: 20071221
  Transmission Date: 20080703
  Serious: Yes (Death, Life-Threatening, Other)
  Sender: FDA-Public Use
  Company Number: 2007P1000009

PATIENT
  Age: 43 Year
  Sex: Male

DRUGS (3)
  1. BUSULFAN (BUSULFAN) [Suspect]
     Indication: STEM CELL TRANSPLANT
     Dosage: 29.32 ML; QD; IV
     Route: 042
     Dates: start: 20061123, end: 20061124
  2. FLUDARABINE PHOSPHATE [Concomitant]
  3. VALPROATE SODIUM [Concomitant]

REACTIONS (8)
  - BRAIN STEM HAEMORRHAGE [None]
  - CYSTITIS HAEMORRHAGIC [None]
  - DISSEMINATED INTRAVASCULAR COAGULATION [None]
  - GASTROINTESTINAL HAEMORRHAGE [None]
  - HAEMORRHAGE [None]
  - INFECTION [None]
  - PULMONARY HAEMORRHAGE [None]
  - SEPSIS [None]
